FAERS Safety Report 7725611-7 (Version None)
Quarter: 2011Q3

REPORT INFORMATION
  Report Type: 
  Country: None (occurrence: None)
  Receive Date: 20110902
  Receipt Date: 20110901
  Transmission Date: 20111222
  Serious: Yes (Other)
  Sender: FDA-Public Use
  Company Number: BR-ABBOTT-11P-020-0837376-00

PATIENT
  Sex: Female
  Weight: 76 kg

DRUGS (5)
  1. PROPRANOLOL [Concomitant]
     Indication: VARICES OESOPHAGEAL
     Route: 048
  2. HUMIRA [Suspect]
     Indication: RHEUMATOID ARTHRITIS
     Route: 058
  3. OMEPRAZOLE [Concomitant]
     Indication: GASTRIC DISORDER
     Route: 048
  4. LEVOTHYROXINE SODIUM [Concomitant]
     Indication: THYROID DISORDER
     Route: 048
  5. METFORMIN HCL [Concomitant]
     Indication: DIABETES MELLITUS
     Route: 048

REACTIONS (6)
  - WHITE BLOOD CELL COUNT DECREASED [None]
  - INJECTION SITE DISCOLOURATION [None]
  - HAEMOGLOBIN DECREASED [None]
  - KNEE ARTHROPLASTY [None]
  - INJECTION SITE HAEMORRHAGE [None]
  - PLATELET COUNT DECREASED [None]
